FAERS Safety Report 25306747 (Version 1)
Quarter: 2025Q2

REPORT INFORMATION
  Report Type: Spontaneous
  Country: US (occurrence: US)
  Receive Date: 20250513
  Receipt Date: 20250513
  Transmission Date: 20250716
  Serious: Yes (Other)
  Sender: UCB
  Company Number: US-UCBSA-2025027241

PATIENT
  Sex: Female

DRUGS (1)
  1. CIMZIA [Suspect]
     Active Substance: CERTOLIZUMAB PEGOL
     Indication: Axial spondyloarthritis

REACTIONS (5)
  - Systemic lupus erythematosus [Unknown]
  - Lyme disease [Unknown]
  - Throat tightness [Recovered/Resolved]
  - Dengue fever [Unknown]
  - Dyspnoea [Unknown]
